FAERS Safety Report 9214691 (Version 1)
Quarter: 2013Q1

REPORT INFORMATION
  Report Type: Spontaneous
  Country: US (occurrence: None)
  Receive Date: 20120827
  Receipt Date: 20120827
  Transmission Date: 20140127
  Serious: Yes (Other)
  Sender: FDA-Public Use
  Company Number: 355033

PATIENT
  Age: 65 Year
  Sex: Female
  Weight: 80.7 kg

DRUGS (6)
  1. VICTOZA (LIRAGLUTIDE) SOLUTION FOR INJECTION, 6MG/ML [Suspect]
     Indication: TYPE 2 DIABETES MELLITUS
     Route: 058
     Dates: start: 20120611, end: 20120617
  2. LEVEMIR FLEXPEN (INSULIN DETERMIR) [Concomitant]
  3. NOVOLOG FLEXPEN (INSULIN ASPART) [Concomitant]
  4. SIMVASTATIN (SIMVASTATIN) [Concomitant]
  5. ENALAPRIL [Concomitant]
  6. BABY ASPIRIN (ACETYLSALICYLIC ACID) [Concomitant]

REACTIONS (4)
  - Dehydration [None]
  - Diarrhoea [None]
  - Nausea [None]
  - Headache [None]
